FAERS Safety Report 9700285 (Version 1)
Quarter: 2013Q4

REPORT INFORMATION
  Report Type: Spontaneous
  Country: JP (occurrence: JP)
  Receive Date: 20131121
  Receipt Date: 20131121
  Transmission Date: 20140711
  Serious: Yes (Hospitalization, Other)
  Sender: FDA-Public Use
  Company Number: JP-JNJFOC-20131109522

PATIENT
  Sex: Male

DRUGS (2)
  1. SIMPONI [Suspect]
     Indication: RHEUMATIC DISORDER
     Route: 058
     Dates: start: 2013
  2. SIMPONI [Suspect]
     Indication: RHEUMATIC DISORDER
     Route: 058
     Dates: end: 20130523

REACTIONS (1)
  - Lung neoplasm malignant [Unknown]
